FAERS Safety Report 17803790 (Version 2)
Quarter: 2020Q2

REPORT INFORMATION
  Report Type: Spontaneous
  Country: HU (occurrence: HU)
  Receive Date: 20200519
  Receipt Date: 20200528
  Transmission Date: 20200714
  Serious: Yes (Other)
  Sender: FDA-Public Use
  Company Number: HU-ALLERGAN-2019745US

PATIENT
  Sex: Female
  Weight: 53 kg

DRUGS (7)
  1. LIPIDIL [Suspect]
     Active Substance: FENOFIBRATE
     Indication: PRODUCT USED FOR UNKNOWN INDICATION
     Dosage: 267 MG, QPM  (DRUG TAKEN BY THE FATHER)
     Route: 065
     Dates: start: 20181213
  2. SINGULAIR [Suspect]
     Active Substance: MONTELUKAST SODIUM
     Indication: PRODUCT USED FOR UNKNOWN INDICATION
     Dosage: 10 MG, QAM (DRUG TAKEN BY THE FATHER)
     Route: 065
     Dates: start: 20190401
  3. EUTHYROX [Suspect]
     Active Substance: LEVOTHYROXINE SODIUM
     Indication: HYPOTHYROIDISM
     Dosage: 50 ?G, QAM, CONTINOUS SINCE SPRING OF 2010
     Route: 065
     Dates: start: 201003
  4. FRAXIPARINE [Suspect]
     Active Substance: NADROPARIN CALCIUM
     Dosage: 0.4 ML, QD
     Route: 058
     Dates: start: 20190712
  5. ESCITALOPRAM OXALATE - BP [Suspect]
     Active Substance: ESCITALOPRAM OXALATE
     Indication: OBSESSIVE-COMPULSIVE DISORDER
     Dosage: 10 MG, QAM OR 20 MG, DAILY (DRUG TAKEN BY THE FATHER)
     Route: 065
     Dates: start: 20120312
  6. FRAXIPARINE [Suspect]
     Active Substance: NADROPARIN CALCIUM
     Indication: FACTOR V LEIDEN MUTATION
     Dosage: 0.3 ML, ONCE
     Route: 058
     Dates: start: 201907, end: 201907
  7. XALATAN [Suspect]
     Active Substance: LATANOPROST
     Indication: GLAUCOMA
     Dosage: 1-1 DROP, DAILY (DRUG TAKEN BY THE FATHER)
     Route: 065
     Dates: start: 20180424

REACTIONS (2)
  - Abortion spontaneous [Unknown]
  - Pregnancy [Unknown]

NARRATIVE: CASE EVENT DATE: 2019
